FAERS Safety Report 9648850 (Version 1)
Quarter: 2013Q4

REPORT INFORMATION
  Report Type: Spontaneous
  Country: FR (occurrence: FR)
  Receive Date: 20131028
  Receipt Date: 20131028
  Transmission Date: 20140711
  Serious: Yes (Hospitalization)
  Sender: FDA-Public Use
  Company Number: FR-MERCK-1310FRA009895

PATIENT
  Age: 63 Year
  Sex: Male

DRUGS (2)
  1. NOXAFIL [Suspect]
     Dosage: 400 MG, BID
     Route: 048
     Dates: start: 20130628, end: 20130628
  2. IOMERON [Suspect]
     Dosage: UNK
     Route: 042
     Dates: start: 20130628, end: 20130628

REACTIONS (2)
  - Bronchospasm [Recovered/Resolved]
  - Rash [Recovered/Resolved]
